FAERS Safety Report 20263888 (Version 1)
Quarter: 2021Q4

REPORT INFORMATION
  Report Type: Spontaneous
  Country: US (occurrence: None)
  Receive Date: 20211230
  Receipt Date: 20211230
  Transmission Date: 20220304
  Serious: Yes (Other)
  Sender: FDA-Public Use
  Company Number: None

PATIENT
  Age: 61 Year
  Sex: Female

DRUGS (6)
  1. REPATHA [Suspect]
     Active Substance: EVOLOCUMAB
     Indication: Hyperlipidaemia
     Dosage: OTHER FREQUENCY : Q 2 WEEKS;?
     Route: 058
     Dates: start: 20211210, end: 20211210
  2. METOPROLOL [Concomitant]
     Active Substance: METOPROLOL
  3. LOSARTAN [Concomitant]
     Active Substance: LOSARTAN
  4. ASPIRIN [Concomitant]
     Active Substance: ASPIRIN
  5. PLAVIX [Concomitant]
     Active Substance: CLOPIDOGREL BISULFATE
  6. PROTONIX [Concomitant]
     Active Substance: PANTOPRAZOLE SODIUM

REACTIONS (7)
  - Headache [None]
  - Ear discomfort [None]
  - Lymphadenopathy [None]
  - Blood pressure increased [None]
  - Disorientation [None]
  - Paranasal sinus discomfort [None]
  - Musculoskeletal discomfort [None]

NARRATIVE: CASE EVENT DATE: 20211214
